FAERS Safety Report 7512855-2 (Version None)
Quarter: 2011Q2

REPORT INFORMATION
  Report Type: 
  Country: None (occurrence: None)
  Receive Date: 20110531
  Receipt Date: 20110523
  Transmission Date: 20111010
  Serious: Yes (Life-Threatening)
  Sender: FDA-Public Use
  Company Number: NZ-BAXTER-2011BH017211

PATIENT
  Age: 6 Year
  Sex: Female

DRUGS (2)
  1. VINCRISTINE [Suspect]
     Indication: NEOPLASM
     Route: 042
     Dates: start: 20110517
  2. SODIUM CHLORIDE 0.9% IN PLASTIC CONTAINER [Suspect]
     Indication: MEDICATION DILUTION
     Route: 042
     Dates: start: 20110517

REACTIONS (1)
  - ANAPHYLACTIC REACTION [None]
